FAERS Safety Report 18154358 (Version 1)
Quarter: 2020Q3

REPORT INFORMATION
  Report Type: Other
  Country: CN (occurrence: CN)
  Receive Date: 20200817
  Receipt Date: 20200817
  Transmission Date: 20201103
  Serious: Yes (Death, Other)
  Sender: FDA-Public Use
  Company Number: CN-ROCHE-2658775

PATIENT
  Age: 57 Year
  Sex: Male

DRUGS (8)
  1. PREDNISONE. [Suspect]
     Active Substance: PREDNISONE
     Dosage: MAINTENANCE REGIMEN
     Route: 048
  2. MYCOPHENOLATE MOFETIL. [Suspect]
     Active Substance: MYCOPHENOLATE MOFETIL
     Indication: PROPHYLAXIS AGAINST TRANSPLANT REJECTION
     Route: 065
  3. ANTITHYMOCYTE IMMUNOGLOBULIN (RABBIT) [Suspect]
     Active Substance: LAPINE T-LYMPHOCYTE IMMUNE GLOBULIN
     Indication: PROPHYLAXIS AGAINST TRANSPLANT REJECTION
     Dosage: PREOPERATIVE
     Route: 065
  4. TACROLIMUS. [Suspect]
     Active Substance: TACROLIMUS
     Indication: PROPHYLAXIS AGAINST TRANSPLANT REJECTION
     Route: 065
  5. METHYLPREDNISOLONE. [Suspect]
     Active Substance: METHYLPREDNISOLONE
     Dosage: 1ST, 2ND, 3RD, 6TH, 7TH AND 8TH DAY OF THE OPERATION
     Route: 041
  6. PREDNISONE. [Suspect]
     Active Substance: PREDNISONE
     Dosage: THE DOSE WAS REDUCED BY 5 MG AT THE INTERVAL OF 2?4 D TILL  5 MG/D FOR MAINTENANCE
     Route: 048
  7. METHYLPREDNISOLONE. [Suspect]
     Active Substance: METHYLPREDNISOLONE
     Indication: PROPHYLAXIS AGAINST TRANSPLANT REJECTION
     Dosage: ON THE DAY OF SURGERY
     Route: 041
     Dates: start: 201704
  8. PREDNISONE. [Suspect]
     Active Substance: PREDNISONE
     Indication: PROPHYLAXIS AGAINST TRANSPLANT REJECTION
     Dosage: FROM THE 3RD DAY OF OPERATION
     Route: 048

REACTIONS (3)
  - Septic shock [Fatal]
  - Peritonitis [Recovered/Resolved]
  - Multiple organ dysfunction syndrome [Fatal]
